FAERS Safety Report 9945329 (Version 1)
Quarter: 2014Q1

REPORT INFORMATION
  Report Type: Report from Study
  Country: US (occurrence: US)
  Receive Date: 20140303
  Receipt Date: 20140303
  Transmission Date: 20141002
  Serious: No
  Sender: FDA-Public Use
  Company Number: US-ABBVIE-13P-163-1050840-00

PATIENT
  Age: 49 Year
  Sex: Female
  Weight: 85.35 kg

DRUGS (5)
  1. HUMIRA [Suspect]
     Indication: COLITIS ULCERATIVE
     Dates: start: 20130207, end: 20130207
  2. PREDNISONE [Concomitant]
     Indication: COLITIS ULCERATIVE
     Dosage: TAPERING DOSES
  3. ZOCOR [Concomitant]
     Indication: BLOOD CHOLESTEROL INCREASED
  4. HYDROCHLOROTHIAZIDE [Concomitant]
     Indication: HYPERTENSION
  5. BYSTOLIC [Concomitant]
     Indication: TACHYCARDIA

REACTIONS (3)
  - Injection site bruising [Not Recovered/Not Resolved]
  - Headache [Recovered/Resolved]
  - Nausea [Recovered/Resolved]
